FAERS Safety Report 5529188-6 (Version None)
Quarter: 2007Q4

REPORT INFORMATION
  Report Type: 
  Country: None (occurrence: None)
  Receive Date: 20071129
  Receipt Date: 20070418
  Transmission Date: 20080405
  Serious: No
  Sender: FDA-Public Use
  Company Number: A0647841A

PATIENT
  Age: 49 Year
  Sex: Female

DRUGS (4)
  1. WELLBUTRIN SR [Suspect]
     Indication: DEPRESSION
     Dosage: 250MG VARIABLE DOSE
     Route: 048
     Dates: start: 20020501
  2. THYROID TAB [Concomitant]
  3. SEREVENT [Concomitant]
  4. ALBUTEROL [Concomitant]

REACTIONS (1)
  - HOT FLUSH [None]
